FAERS Safety Report 18898585 (Version 1)
Quarter: 2021Q1

REPORT INFORMATION
  Report Type: Spontaneous
  Country: US (occurrence: US)
  Receive Date: 20210215
  Receipt Date: 20210215
  Transmission Date: 20210420
  Serious: No
  Sender: FDA-Public Use
  Company Number: None

PATIENT
  Age: 79 Year
  Sex: Male

DRUGS (1)
  1. YERVOY [Suspect]
     Active Substance: IPILIMUMAB
     Dosage: ?          OTHER FREQUENCY:UNKNOWN;?
     Route: 043
     Dates: start: 202012

REACTIONS (1)
  - Disease progression [None]

NARRATIVE: CASE EVENT DATE: 20210215
